FAERS Safety Report 23970412 (Version 2)
Quarter: 2024Q3

REPORT INFORMATION
  Report Type: Report from Study
  Country: US (occurrence: US)
  Receive Date: 20240613
  Receipt Date: 20240712
  Transmission Date: 20241016
  Serious: Yes (Hospitalization)
  Sender: TAKEDA
  Company Number: US-TAKEDA-2024TUS017037

PATIENT
  Sex: Male
  Weight: 87 kg

DRUGS (3)
  1. FRUQUINTINIB [Suspect]
     Active Substance: FRUQUINTINIB
     Indication: Colon cancer
     Dosage: 5 MILLIGRAM
     Route: 048
     Dates: start: 20240202
  2. FRUQUINTINIB [Suspect]
     Active Substance: FRUQUINTINIB
     Dosage: 5 MILLIGRAM, QD
     Route: 048
     Dates: start: 20240208
  3. CAPECITABINE [Concomitant]
     Active Substance: CAPECITABINE
     Dosage: 1000 MILLIGRAM, BID
     Route: 065

REACTIONS (4)
  - Peripheral swelling [Unknown]
  - Testicular swelling [Unknown]
  - Lethargy [Unknown]
  - Dizziness [Unknown]
